FAERS Safety Report 10420558 (Version 1)
Quarter: 2014Q3

REPORT INFORMATION
  Report Type: Spontaneous
  Country: US (occurrence: None)
  Receive Date: 20140714
  Receipt Date: 20140714
  Transmission Date: 20150326
  Serious: No
  Sender: FDA-Public Use
  Company Number: 2014US003133

PATIENT
  Age: 27 Year
  Sex: Female

DRUGS (14)
  1. ALBUTEROL (SALBUTAMOL) [Concomitant]
     Active Substance: ALBUTEROL
  2. POTASSIUM CHLORIDE) [Concomitant]
  3. INSULIN (INSULIN PORINE) [Concomitant]
  4. BUSPIRONE (BUSPIRONE HYDROCHLORIDE) [Concomitant]
  5. SYNTHROID [Concomitant]
     Active Substance: LEVOTHYROXINE SODIUM
  6. DEMADEX (TORESMIDE) [Concomitant]
  7. ICLUSIG [Suspect]
     Active Substance: PONATINIB
     Indication: CHRONIC MYELOID LEUKAEMIA
     Dosage: UNK TO 2013
     Route: 048
     Dates: end: 2013
  8. ACTOS [Concomitant]
     Active Substance: PIOGLITAZONE HYDROCHLORIDE
  9. COMPAZINE (PROCHLORPERAZINE MALEATE) [Concomitant]
  10. VISTARIL (HYDROXYZINE EMBONATE) [Concomitant]
  11. ZOLOFT [Concomitant]
     Active Substance: SERTRALINE HYDROCHLORIDE
  12. DILTIAZEM (DILTIAZEM HYDROCHLORIDE) (DILTIAZEM HYDROCHLORIDE) [Concomitant]
     Active Substance: DILTIAZEM
  13. OXYCODONE (OXYCODONE HYDROCHLORIDE) (OXYCODONE) [Concomitant]
     Active Substance: OXYCODONE
  14. NORETHINDRONE. [Concomitant]
     Active Substance: NORETHINDRONE

REACTIONS (3)
  - Sleep disorder [None]
  - Rash generalised [None]
  - Rash [None]

NARRATIVE: CASE EVENT DATE: 20140228
